FAERS Safety Report 14129494 (Version 3)
Quarter: 2018Q3

REPORT INFORMATION
  Report Type: Report from Study
  Country: US (occurrence: US)
  Receive Date: 20171026
  Receipt Date: 20180719
  Transmission Date: 20181010
  Serious: No
  Sender: FDA-Public Use
  Company Number: US-AMGEN-USASL2017121669

PATIENT
  Age: 67 Year
  Sex: Female

DRUGS (2)
  1. APPLE CIDER VINEGAR [Concomitant]
     Active Substance: APPLE CIDER VINEGAR
     Indication: OVERWEIGHT
     Dosage: 6000 MG, QD
  2. REPATHA [Suspect]
     Active Substance: EVOLOCUMAB
     Indication: HYPERCHOLESTEROLAEMIA
     Dosage: 140 MG, Q2WK
     Route: 065

REACTIONS (3)
  - Injection site pain [Recovered/Resolved]
  - Weight decreased [Unknown]
  - Fibromyalgia [Not Recovered/Not Resolved]
